FAERS Safety Report 16780441 (Version 1)
Quarter: 2019Q3

REPORT INFORMATION
  Report Type: Spontaneous
  Country: US (occurrence: US)
  Receive Date: 20190906
  Receipt Date: 20190906
  Transmission Date: 20191005
  Serious: Yes (Hospitalization, Other)
  Sender: FDA-Public Use
  Company Number: US-MYLANLABS-2019M1082834

PATIENT
  Age: 68 Year
  Sex: Male

DRUGS (3)
  1. DOCETAXEL. [Concomitant]
     Active Substance: DOCETAXEL
     Indication: TONSIL CANCER
     Dosage: ON DAY 1
     Route: 065
  2. CISPLATIN. [Concomitant]
     Active Substance: CISPLATIN
     Indication: TONSIL CANCER
     Dosage: ON DAY 1
     Route: 065
  3. FLUOROURACIL. [Suspect]
     Active Substance: FLUOROURACIL
     Indication: TONSIL CANCER
     Dosage: ON DAY 1. FURTHER IT WAS REPEATED ON DAY 2-4 AND FINISHED ON DAY 5.
     Route: 065

REACTIONS (11)
  - Intestinal ischaemia [Recovered/Resolved]
  - Gastrointestinal mucosal exfoliation [Unknown]
  - Toxicity to various agents [Recovered/Resolved]
  - Hypoperfusion [Recovered/Resolved]
  - Neutropenia [Recovered/Resolved]
  - Hypovolaemia [Recovered/Resolved]
  - Colitis [Recovered/Resolved]
  - Diarrhoea haemorrhagic [Recovered/Resolved]
  - Overdose [Recovered/Resolved]
  - Bone marrow failure [Recovered/Resolved]
  - Stomatitis [Recovered/Resolved]
